FAERS Safety Report 15861107 (Version 1)
Quarter: 2019Q1

REPORT INFORMATION
  Report Type: Spontaneous
  Country: US (occurrence: US)
  Receive Date: 20190124
  Receipt Date: 20190124
  Transmission Date: 20190417
  Serious: No
  Sender: FDA-Public Use
  Company Number: PHEH2019US003371

PATIENT
  Sex: Female

DRUGS (1)
  1. ETODOLAC TABLETS [Suspect]
     Active Substance: ETODOLAC
     Indication: PAIN
     Route: 065

REACTIONS (1)
  - Drug ineffective [Unknown]
